FAERS Safety Report 4453363-5 (Version None)
Quarter: 2004Q3

REPORT INFORMATION
  Report Type: 
  Country: None (occurrence: None)
  Receive Date: 20040920
  Receipt Date: 20040908
  Transmission Date: 20050211
  Serious: Yes (Death)
  Sender: FDA-Public Use
  Company Number: US-JNJFOC-20040904032

PATIENT

DRUGS (2)
  1. TOPAMAX [Suspect]
     Route: 064
  2. ZOLOFT [Concomitant]
     Route: 064

REACTIONS (5)
  - DRUG EXPOSURE DURING PREGNANCY [None]
  - FOETAL DISORDER [None]
  - FOETAL HEART RATE ABNORMAL [None]
  - PREMATURE BABY [None]
  - STILLBIRTH [None]
